FAERS Safety Report 13498168 (Version 2)
Quarter: 2017Q2

REPORT INFORMATION
  Report Type: Spontaneous
  Country: BR (occurrence: BR)
  Receive Date: 20170501
  Receipt Date: 20170512
  Transmission Date: 20170830
  Serious: Yes (Other)
  Sender: FDA-Public Use
  Company Number: BR-ROCHE-1926433

PATIENT
  Sex: Male

DRUGS (8)
  1. VENLAFAXINE [Concomitant]
     Active Substance: VENLAFAXINE HYDROCHLORIDE
  2. PARACETAMOL [Concomitant]
     Active Substance: ACETAMINOPHEN
     Route: 065
  3. ATENOLOL. [Concomitant]
     Active Substance: ATENOLOL
  4. MABTHERA [Suspect]
     Active Substance: RITUXIMAB
     Indication: NON-HODGKIN^S LYMPHOMA
     Route: 058
     Dates: start: 20161005, end: 20161201
  5. METFORMIN HYDROCHLORIDE. [Concomitant]
     Active Substance: METFORMIN HYDROCHLORIDE
  6. LORATADINE. [Concomitant]
     Active Substance: LORATADINE
     Route: 065
  7. FRONTAL [Concomitant]
     Active Substance: ALPRAZOLAM
  8. SIMVASTATIN. [Concomitant]
     Active Substance: SIMVASTATIN

REACTIONS (1)
  - Peau d^orange [Recovered/Resolved]

NARRATIVE: CASE EVENT DATE: 20161007
